FAERS Safety Report 16843949 (Version 1)
Quarter: 2019Q3

REPORT INFORMATION
  Report Type: Spontaneous
  Country: CA (occurrence: CA)
  Receive Date: 20190924
  Receipt Date: 20190924
  Transmission Date: 20191005
  Serious: Yes (Other)
  Sender: FDA-Public Use
  Company Number: CA-ROCHE-2057226

PATIENT
  Age: 58 Year
  Sex: Female

DRUGS (8)
  1. XOLAIR [Suspect]
     Active Substance: OMALIZUMAB
     Route: 058
     Dates: start: 20190814
  2. REACTINE [CETIRIZINE HYDROCHLORIDE] [Concomitant]
     Active Substance: CETIRIZINE HYDROCHLORIDE
     Indication: PRODUCT USED FOR UNKNOWN INDICATION
     Dosage: 1 DF, QD
     Route: 065
  3. XOLAIR [Suspect]
     Active Substance: OMALIZUMAB
     Route: 058
     Dates: start: 20171213
  4. ULTIBRO BREEZHALER [Concomitant]
     Active Substance: GLYCOPYRRONIUM\INDACATEROL
     Indication: PRODUCT USED FOR UNKNOWN INDICATION
     Dosage: 110 UG, UNK
     Route: 065
  5. SYMBICORT [Concomitant]
     Active Substance: BUDESONIDE\FORMOTEROL FUMARATE DIHYDRATE
     Indication: PRODUCT USED FOR UNKNOWN INDICATION
     Dosage: 2 DF, QD
     Route: 065
  6. XOLAIR [Suspect]
     Active Substance: OMALIZUMAB
     Indication: ASTHMA
     Dosage: 300 MG, 4 WEEKS
     Route: 058
     Dates: start: 20160922
  7. VENTOLIN [Concomitant]
     Active Substance: ALBUTEROL SULFATE
     Indication: PRODUCT USED FOR UNKNOWN INDICATION
     Dosage: 3 DF, QD
     Route: 065
  8. XOLAIR [Suspect]
     Active Substance: OMALIZUMAB
     Route: 058
     Dates: start: 20170503

REACTIONS (6)
  - Chills [Not Recovered/Not Resolved]
  - Osteoarthritis [Not Recovered/Not Resolved]
  - Pyrexia [Recovered/Resolved]
  - Weight decreased [Unknown]
  - Compression fracture [Unknown]
  - Pneumonia [Unknown]

NARRATIVE: CASE EVENT DATE: 2017
